FAERS Safety Report 21621445 (Version 1)
Quarter: 2022Q4

REPORT INFORMATION
  Report Type: Report from Study
  Country: US (occurrence: US)
  Receive Date: 20221121
  Receipt Date: 20221121
  Transmission Date: 20230112
  Serious: Yes (Death, Hospitalization, Other)
  Sender: FDA-Public Use
  Company Number: US-PFIZER INC-PV202200104269

PATIENT
  Age: 18 Year
  Sex: Male

DRUGS (3)
  1. MANNITOL [Suspect]
     Active Substance: MANNITOL
     Indication: Blood osmolarity
     Dosage: 0.5-1G/KG  (BOLOUS)
  2. FUROSEMIDE [Suspect]
     Active Substance: FUROSEMIDE
     Indication: Blood osmolarity
     Dosage: 20 MG
  3. SODIUM CHLORIDE [Suspect]
     Active Substance: SODIUM CHLORIDE
     Indication: Blood osmolarity
     Dosage: WITH OR WITHOUT HYPERTONIC SALINE BOLUS (3% OR 23%)

REACTIONS (3)
  - Sepsis [Fatal]
  - CNS ventriculitis [Fatal]
  - Meningitis [Fatal]
